FAERS Safety Report 9196274 (Version 1)
Quarter: 2013Q1

REPORT INFORMATION
  Report Type: Spontaneous
  Country: IT (occurrence: IT)
  Receive Date: 20130328
  Receipt Date: 20130328
  Transmission Date: 20140127
  Serious: Yes (Hospitalization)
  Sender: FDA-Public Use
  Company Number: IT-PFIZER INC-2013097334

PATIENT
  Age: 63 Year
  Sex: Male

DRUGS (2)
  1. CISPLATIN [Suspect]
     Indication: LUNG ADENOCARCINOMA
     Dosage: 116 MG, CYCLIC
     Route: 042
     Dates: start: 20130315, end: 20130315
  2. GEMCITABINE [Suspect]
     Dosage: 1162 MG, CYCLIC
     Route: 042
     Dates: start: 20130314, end: 20130314

REACTIONS (4)
  - Asthenia [Recovering/Resolving]
  - Dyspnoea [Recovering/Resolving]
  - Cardiac failure [Recovering/Resolving]
  - Congestive cardiomyopathy [None]
